FAERS Safety Report 4783711-8 (Version None)
Quarter: 2005Q3

REPORT INFORMATION
  Report Type: 
  Country: None (occurrence: None)
  Receive Date: 20050928
  Receipt Date: 20050916
  Transmission Date: 20060218
  Serious: Yes (Other)
  Sender: FDA-Public Use
  Company Number: 2005124899

PATIENT
  Age: 75 Year
  Sex: Male
  Weight: 92.5 kg

DRUGS (7)
  1. INSPRA [Suspect]
     Indication: CARDIAC FAILURE
     Dosage: 25 MG (25 MG DAILY INTERVAL: EVERY DAY), ORAL
     Route: 048
     Dates: start: 20050806, end: 20050901
  2. BUMETANIDE [Concomitant]
  3. CARVEDILOL [Concomitant]
  4. RAMIPRIL [Concomitant]
  5. LANSOPRAZOLE [Concomitant]
  6. MEBEVERINE (MEBEVERINE) [Concomitant]
  7. WARFARIN SODIUM [Concomitant]

REACTIONS (5)
  - CARDIAC FAILURE CHRONIC [None]
  - CONDITION AGGRAVATED [None]
  - DRUG INTOLERANCE [None]
  - IMPLANT SITE SWELLING [None]
  - PACEMAKER COMPLICATION [None]
